FAERS Safety Report 10947740 (Version 1)
Quarter: 2015Q1

REPORT INFORMATION
  Report Type: Spontaneous
  Country: US (occurrence: US)
  Receive Date: 20150324
  Receipt Date: 20150324
  Transmission Date: 20150721
  Serious: Yes (Other)
  Sender: FDA-Public Use
  Company Number: US-AUROBINDO-AUR-APL-2015-02505

PATIENT
  Sex: Female

DRUGS (2)
  1. CYCLOBENZAPRINE [Suspect]
     Active Substance: CYCLOBENZAPRINE
     Indication: CERVICAL RADICULOPATHY
     Dosage: UNK
     Route: 065
  2. NAPROXEN. [Suspect]
     Active Substance: NAPROXEN
     Indication: CERVICAL RADICULOPATHY
     Dosage: UNK
     Route: 065

REACTIONS (5)
  - Myalgia [Unknown]
  - C-reactive protein increased [Unknown]
  - Serum sickness-like reaction [Unknown]
  - Polyarthritis [Unknown]
  - Pyrexia [Unknown]
